FAERS Safety Report 4858115-X (Version None)
Quarter: 2005Q4

REPORT INFORMATION
  Report Type: 
  Country: None (occurrence: None)
  Receive Date: 20051219
  Receipt Date: 20050512
  Transmission Date: 20060501
  Serious: No
  Sender: FDA-Public Use
  Company Number: US-GLAXOSMITHKLINE-A0558327A

PATIENT
  Age: 66 Year
  Sex: Female

DRUGS (6)
  1. NICODERM CQ [Suspect]
     Dates: start: 20050511
  2. NICODERM CQ [Suspect]
     Dates: end: 20050511
  3. NICODERM CQ [Suspect]
  4. NICORETTE (MINT) [Suspect]
  5. NICORETTE ORANGE OTC 4MG [Suspect]
  6. EQUATE NICOTINE GUM 4MG [Suspect]

REACTIONS (5)
  - APPLICATION SITE ERYTHEMA [None]
  - APPLICATION SITE PAPULES [None]
  - APPLICATION SITE PRURITUS [None]
  - DIZZINESS [None]
  - GINGIVAL RECESSION [None]
